FAERS Safety Report 5903556-2 (Version None)
Quarter: 2008Q3

REPORT INFORMATION
  Report Type: 
  Country: None (occurrence: None)
  Receive Date: 20080930
  Receipt Date: 20080918
  Transmission Date: 20090109
  Serious: Yes (Other)
  Sender: FDA-Public Use
  Company Number: JP-PFIZER INC-2008079138

PATIENT
  Age: 19 Year
  Sex: Male

DRUGS (2)
  1. ZOLOFT [Suspect]
     Indication: DEPRESSION
     Dosage: DAILY DOSE:50MG-FREQ:DAILY
     Route: 048
  2. TRAZODONE HCL [Concomitant]
     Indication: SLEEP DISORDER
     Route: 048

REACTIONS (2)
  - DELIRIUM [None]
  - NAUSEA [None]
